FAERS Safety Report 8530418-7 (Version None)
Quarter: 2012Q3

REPORT INFORMATION
  Report Type: 
  Country: None (occurrence: None)
  Receive Date: 20120723
  Receipt Date: 20120719
  Transmission Date: 20120928
  Serious: Yes (Life-Threatening, Hospitalization)
  Sender: FDA-Public Use
  Company Number: NL-ABBOTT-12P-114-0919238-00

PATIENT
  Sex: Female
  Weight: 62 kg

DRUGS (7)
  1. HUMIRA [Suspect]
     Indication: RHEUMATOID ARTHRITIS
     Route: 058
     Dates: start: 20081101, end: 20120305
  2. F2 NOS [Concomitant]
     Indication: SUPPLEMENTATION THERAPY
     Route: 048
     Dates: start: 19990101
  3. ACENOCOUMAROL [Concomitant]
     Indication: PRODUCT USED FOR UNKNOWN INDICATION
     Route: 065
  4. SOLTATOL [Concomitant]
     Indication: ATRIAL FIBRILLATION
     Route: 065
  5. METHOTREXATE [Suspect]
     Indication: RHEUMATOID ARTHRITIS
     Route: 048
     Dates: start: 19990101
  6. CALCIUM D3 [Concomitant]
     Indication: OSTEOPENIA
     Route: 048
     Dates: start: 20080101
  7. SYNAPAUSE [Concomitant]
     Indication: VULVOVAGINAL PAIN
     Route: 065

REACTIONS (2)
  - OVARIAN CANCER [None]
  - SWELLING [None]
